FAERS Safety Report 6828170-6 (Version None)
Quarter: 2010Q3

REPORT INFORMATION
  Report Type: 
  Country: None (occurrence: None)
  Receive Date: 20100709
  Receipt Date: 20100113
  Transmission Date: 20110219
  Serious: Yes (Hospitalization)
  Sender: FDA-Public Use
  Company Number: CN-ROCHE-679261

PATIENT
  Sex: Female
  Weight: 64 kg

DRUGS (6)
  1. TOCILIZUMAB [Suspect]
     Indication: RHEUMATOID ARTHRITIS
     Dosage: FORM INFUSION.
     Route: 042
     Dates: start: 20070704, end: 20090826
  2. TOCILIZUMAB [Suspect]
     Route: 042
     Dates: start: 20091118
  3. PLACEBO [Suspect]
     Indication: RHEUMATOID ARTHRITIS
     Dosage: FORM: INFUSION PERMANENTLY DISCONTINUED.
     Route: 042
     Dates: start: 20060706, end: 20090826
  4. PLACEBO [Suspect]
     Dosage: PERMANENTLY DISCONTINUED.
     Route: 042
     Dates: start: 20091118
  5. GLIPIZIDE [Concomitant]
     Dosage: DRUG REPORTED: GLIPIZIDE-SINE
     Dates: start: 20020101
  6. METFORMIN HYDROCHLORIDE [Concomitant]
     Dates: start: 20061206

REACTIONS (1)
  - EXTRANODAL MARGINAL ZONE B-CELL LYMPHOMA (MALT TYPE) [None]
